FAERS Safety Report 19583218 (Version 1)
Quarter: 2021Q3

REPORT INFORMATION
  Report Type: Spontaneous
  Country: US (occurrence: US)
  Receive Date: 20210720
  Receipt Date: 20210720
  Transmission Date: 20211014
  Serious: Yes (Hospitalization)
  Sender: FDA-Public Use
  Company Number: US-MYLANLABS-2021M1043227

PATIENT
  Age: 33 Year
  Sex: Female

DRUGS (6)
  1. CABERGOLINE. [Suspect]
     Active Substance: CABERGOLINE
     Indication: OVARIAN HYPERSTIMULATION SYNDROME
     Dosage: 0.5 MILLIGRAM
     Route: 067
  2. LETROZOLE. [Concomitant]
     Active Substance: LETROZOLE
     Dosage: 10 GRAM (DAY 8?9)
     Route: 065
  3. CETRORELIX [Concomitant]
     Active Substance: CETRORELIX
     Indication: DRUG THERAPY
     Dosage: UNK
     Route: 065
  4. DOXYCYCLINE. [Concomitant]
     Active Substance: DOXYCYCLINE
     Indication: INFECTION PROPHYLAXIS
     Dosage: UNK
     Route: 065
  5. CABERGOLINE. [Suspect]
     Active Substance: CABERGOLINE
     Indication: PROPHYLAXIS
  6. LETROZOLE. [Concomitant]
     Active Substance: LETROZOLE
     Indication: OVULATION INDUCTION
     Dosage: 7.5 MILLIGRAM (DAY 1?7)
     Route: 065

REACTIONS (2)
  - Off label use [Unknown]
  - Drug ineffective for unapproved indication [Unknown]
